FAERS Safety Report 9815658 (Version 1)
Quarter: 2014Q1

REPORT INFORMATION
  Report Type: Spontaneous
  Country: TR (occurrence: None)
  Receive Date: 20140110
  Receipt Date: 20140110
  Transmission Date: 20141002
  Serious: Yes (Other)
  Sender: FDA-Public Use
  Company Number: FK201400039

PATIENT
  Sex: Male
  Weight: .77 kg

DRUGS (5)
  1. VANCOMYCIN [Suspect]
     Indication: LUNG INFILTRATION
  2. NETILMICIN [Suspect]
     Indication: EVIDENCE BASED TREATMENT
     Route: 042
  3. MEROPENEM [Concomitant]
  4. AMPICILLIN [Concomitant]
  5. BOVACTANT [Concomitant]

REACTIONS (8)
  - Pseudo-Bartter syndrome [None]
  - Hypokalaemia [None]
  - Hyponatraemia [None]
  - Hypomagnesaemia [None]
  - Hypocalcaemia [None]
  - Staphylococcus test positive [None]
  - Metabolic alkalosis [None]
  - Hypercalciuria [None]
